FAERS Safety Report 16810977 (Version 3)
Quarter: 2019Q3

REPORT INFORMATION
  Report Type: Report from Study
  Country: US (occurrence: US)
  Receive Date: 20190916
  Receipt Date: 20190923
  Transmission Date: 20191005
  Serious: Yes (Life-Threatening, Other)
  Sender: FDA-Public Use
  Company Number: PHHO2019US008146

PATIENT
  Age: 44 Year
  Weight: 91.5 kg

DRUGS (4)
  1. FENOFIBRATE. [Suspect]
     Active Substance: FENOFIBRATE
     Indication: LIVER INJURY
     Dosage: UNK
     Route: 065
     Dates: start: 201903
  2. LEXAPRO [Concomitant]
     Active Substance: ESCITALOPRAM OXALATE
     Indication: DEPRESSION
     Dosage: UNK
     Route: 065
     Dates: start: 20130101
  3. COSENTYX [Suspect]
     Active Substance: SECUKINUMAB
     Indication: PSORIASIS
     Dosage: 300 MG, Q2W
     Route: 058
     Dates: start: 20181107, end: 20190605
  4. SODIUM CHLORIDE. [Concomitant]
     Active Substance: SODIUM CHLORIDE
     Indication: RHINITIS
     Dosage: UNK
     Route: 065
     Dates: start: 20060101

REACTIONS (1)
  - Drug-induced liver injury [Not Recovered/Not Resolved]

NARRATIVE: CASE EVENT DATE: 20190306
